FAERS Safety Report 5942114-0 (Version None)
Quarter: 2008Q4

REPORT INFORMATION
  Report Type: 
  Country: None (occurrence: None)
  Receive Date: 20081104
  Receipt Date: 20081104
  Transmission Date: 20090506
  Serious: No
  Sender: FDA-Public Use
  Company Number: None

PATIENT
  Age: 68 Year
  Sex: Male
  Weight: 85 kg

DRUGS (1)
  1. HEPARIN [Suspect]
     Dosage: 5000 UNITS BID SQ
     Route: 058
     Dates: start: 20080223, end: 20080229

REACTIONS (1)
  - SEPSIS [None]
